FAERS Safety Report 5862412-9 (Version None)
Quarter: 2008Q3

REPORT INFORMATION
  Report Type: 
  Country: None (occurrence: None)
  Receive Date: 20080828
  Receipt Date: 20080821
  Transmission Date: 20090109
  Serious: Yes (Congenital Anomaly)
  Sender: FDA-Public Use
  Company Number: GB-TEVA-176256ISR

PATIENT
  Sex: Female

DRUGS (2)
  1. LAMOTRIGINE [Suspect]
     Indication: PARTIAL SEIZURES
     Route: 064
  2. TOPIRAMATE [Suspect]
     Indication: PARTIAL SEIZURES
     Route: 064

REACTIONS (1)
  - ANAL ATRESIA [None]
